FAERS Safety Report 6577621-3 (Version None)
Quarter: 2010Q1

REPORT INFORMATION
  Report Type: 
  Country: None (occurrence: None)
  Receive Date: 20100211
  Receipt Date: 20100129
  Transmission Date: 20100710
  Serious: Yes (Other)
  Sender: FDA-Public Use
  Company Number: PHHY2009IT57864

PATIENT
  Sex: Female

DRUGS (2)
  1. EXJADE [Suspect]
     Dosage: 1125 MG/DAY
     Route: 048
     Dates: start: 20081201, end: 20091207
  2. RANITIDINE [Concomitant]
     Indication: ABDOMINAL PAIN UPPER
     Dosage: 50 MG, UNK
     Route: 042
     Dates: start: 20091024

REACTIONS (1)
  - GLYCOSURIA [None]
